FAERS Safety Report 24255718 (Version 4)
Quarter: 2024Q3

REPORT INFORMATION
  Report Type: Spontaneous
  Country: CA (occurrence: CA)
  Receive Date: 20240827
  Receipt Date: 20240926
  Transmission Date: 20241016
  Serious: Yes (Hospitalization, Other)
  Sender: PFIZER
  Company Number: CA-PFIZER INC-PV202400109841

PATIENT
  Age: 59 Year
  Sex: Female

DRUGS (1)
  1. LORBRENA [Suspect]
     Active Substance: LORLATINIB
     Indication: Non-small cell lung cancer metastatic
     Dosage: 100 MG, DAILY
     Route: 048
     Dates: start: 20240822, end: 202409

REACTIONS (5)
  - Hip fracture [Recovering/Resolving]
  - Epistaxis [Not Recovered/Not Resolved]
  - Cough [Unknown]
  - Cancer pain [Unknown]
  - Cough [Unknown]

NARRATIVE: CASE EVENT DATE: 20240101
